FAERS Safety Report 10135341 (Version 1)
Quarter: 2014Q2

REPORT INFORMATION
  Report Type: Report from Study
  Country: US (occurrence: US)
  Receive Date: 20140428
  Receipt Date: 20140428
  Transmission Date: 20141212
  Serious: Yes (Other)
  Sender: FDA-Public Use
  Company Number: US-ABBVIE-14P-163-1227569-00

PATIENT
  Sex: Female

DRUGS (3)
  1. HUMIRA [Suspect]
     Indication: PSORIASIS
     Dates: start: 20140225, end: 20140225
  2. HUMIRA [Suspect]
     Dates: start: 20140304, end: 20140304
  3. HUMIRA [Suspect]
     Dates: start: 20140318, end: 20140318

REACTIONS (3)
  - Visual acuity reduced [Unknown]
  - Pancreatitis [Recovering/Resolving]
  - Arthropathy [Unknown]
